FAERS Safety Report 5536365-7 (Version None)
Quarter: 2007Q4

REPORT INFORMATION
  Report Type: 
  Country: None (occurrence: None)
  Receive Date: 20071120
  Receipt Date: 20070925
  Transmission Date: 20080405
  Serious: No
  Sender: FDA-Public Use
  Company Number: WAES 0709USA04255

PATIENT
  Age: 74 Year
  Sex: Male

DRUGS (2)
  1. JANUVIA [Suspect]
     Indication: TYPE 2 DIABETES MELLITUS
     Dosage: 100 MG DAILY PO
     Route: 048
     Dates: start: 20070918, end: 20070901
  2. THERAPY UNSPECIFIED [Concomitant]

REACTIONS (3)
  - ABDOMINAL PAIN UPPER [None]
  - URINARY TRACT INFECTION [None]
  - URINE OUTPUT DECREASED [None]
